FAERS Safety Report 16411581 (Version 2)
Quarter: 2019Q2

REPORT INFORMATION
  Report Type: Report from Study
  Country: US (occurrence: US)
  Receive Date: 20190610
  Receipt Date: 20190628
  Transmission Date: 20190711
  Serious: Yes (Death)
  Sender: FDA-Public Use
  Company Number: US-PFIZER INC-2019244123

PATIENT
  Age: 50 Year
  Sex: Male
  Weight: 87.7 kg

DRUGS (15)
  1. LIDOCAINE VISCOUS [Concomitant]
     Active Substance: LIDOCAINE HYDROCHLORIDE
     Indication: PROCTALGIA
     Dosage: UNK UNK, 2 IN 1 D
     Route: 061
     Dates: start: 20180328
  2. 5-FLUOROURACIL [Suspect]
     Active Substance: FLUOROURACIL
     Indication: COLORECTAL CANCER METASTATIC
     Dosage: 400 MG/M2, DAY 1 OF EACH 14-DAY CYCLE
     Route: 040
     Dates: start: 20181113, end: 20190528
  3. FIRST MOUTHWASH BLM [Concomitant]
     Active Substance: ALUMINUM HYDROXIDE\DIMETHICONE 410\DIPHENHYDRAMINE HYDROCHLORIDE\LIDOCAINE HYDROCHLORIDE\MAGNESIUM HYDROXIDE
     Indication: MUCOSAL INFLAMMATION
     Dosage: 10 ML, 4 IN 1 D
     Route: 048
     Dates: start: 20181206
  4. OXYCODONE [Concomitant]
     Active Substance: OXYCODONE
     Indication: PROCTALGIA
     Dosage: 10 ,AS REQUIRED
     Route: 048
     Dates: start: 20180321
  5. IRINOTECAN HCL [Suspect]
     Active Substance: IRINOTECAN HYDROCHLORIDE
     Indication: COLORECTAL CANCER METASTATIC
     Dosage: 180 MG/M2, DAY 1 OF EACH 14-DAY CYCLE
     Route: 042
     Dates: start: 20181113, end: 20190326
  6. LORAZEPAM. [Concomitant]
     Active Substance: LORAZEPAM
     Indication: NAUSEA
     Dosage: 1 MG, AS REQUIRED
     Route: 048
     Dates: start: 20181114
  7. L-GLUTAMINE [GLUTAMIC ACID] [Concomitant]
     Indication: SUPPLEMENTATION THERAPY
     Dosage: 1 TABLET, AS REQUIRED
     Route: 048
     Dates: start: 201808
  8. CANNABIS [Concomitant]
     Active Substance: CANNABIS SATIVA SUBSP. INDICA TOP
     Indication: CANCER PAIN
     Dosage: UNK UNK, AS REQUIRED
     Route: 048
     Dates: start: 20171218
  9. EMLA [LIDOCAINE;PRILOCAINE] [Concomitant]
     Indication: CATHETER SITE PAIN
     Dosage: UNK, PRIOR TO CHEMOTHERAPY
     Route: 061
     Dates: start: 20180119
  10. LORAZEPAM. [Concomitant]
     Active Substance: LORAZEPAM
     Indication: PROPHYLAXIS OF NAUSEA AND VOMITING
  11. BEVACIZUMAB. [Suspect]
     Active Substance: BEVACIZUMAB
     Indication: COLORECTAL CANCER METASTATIC
     Dosage: 5 MG/KG, DAY 1 OF EACH 14-DAY CYCLE
     Route: 042
     Dates: start: 20181113, end: 20190326
  12. LEUCOVORIN. [Suspect]
     Active Substance: LEUCOVORIN
     Indication: COLORECTAL CANCER METASTATIC
     Dosage: 400 MG/M2, DAY 1 OF EACH 14-DAY CYCLE
     Route: 042
     Dates: start: 20181113, end: 20190326
  13. OMEPRAZOLE. [Concomitant]
     Active Substance: OMEPRAZOLE
     Indication: GASTROOESOPHAGEAL REFLUX DISEASE
     Dosage: 20 MG, 1 IN 1 D
     Route: 048
     Dates: start: 20180307
  14. DEXAMETHASONE. [Concomitant]
     Active Substance: DEXAMETHASONE
     Indication: PROPHYLACTIC CHEMOTHERAPY
     Dosage: 8 MG, DAYS 2 - 4 OF CHEMO CYCLE
     Route: 048
     Dates: start: 20181113
  15. 5-FLUOROURACIL [Suspect]
     Active Substance: FLUOROURACIL
     Dosage: 2400 MG/M2, DAY 1 OF EACH 14-DAY CYCLE
     Route: 041
     Dates: start: 20181113, end: 20190528

REACTIONS (1)
  - Neoplasm progression [Fatal]

NARRATIVE: CASE EVENT DATE: 20190528
